FAERS Safety Report 10290510 (Version 4)
Quarter: 2014Q3

REPORT INFORMATION
  Report Type: Spontaneous
  Country: IL (occurrence: IL)
  Receive Date: 20140710
  Receipt Date: 20140828
  Transmission Date: 20150326
  Serious: Yes (Death, Hospitalization, Other)
  Sender: FDA-Public Use
  Company Number: IL-PFIZER INC-2014098835

PATIENT
  Age: 58 Year
  Sex: Male

DRUGS (10)
  1. ZOFRAN [Concomitant]
     Active Substance: ONDANSETRON HYDROCHLORIDE
     Dosage: UNK
  2. RECLAST [Concomitant]
     Active Substance: ZOLEDRONIC ACID
     Dosage: UNK
  3. RAMIPRIL. [Concomitant]
     Active Substance: RAMIPRIL
     Dosage: UNK
  4. PRAMIN [Concomitant]
     Dosage: UNK
  5. INLYTA [Suspect]
     Active Substance: AXITINIB
     Dosage: 10 MG, 2X/DAY, CONTINUOUS
     Route: 048
     Dates: end: 20140706
  6. INLYTA [Suspect]
     Active Substance: AXITINIB
     Indication: RENAL CELL CARCINOMA
     Dosage: 7 MG, 2X/DAY, CONTINUOUS, CUMULATIVE DOSE OVER 640 MG
     Route: 048
     Dates: start: 20140223
  7. TARGIN [Concomitant]
     Active Substance: NALOXONE HYDROCHLORIDE\OXYCODONE HYDROCHLORIDE
     Dosage: UNK
  8. OMEPRADEX [Concomitant]
     Active Substance: OMEPRAZOLE
     Dosage: UNK
  9. NORMOPRESAN [Concomitant]
     Dosage: UNK
  10. FENTA [Concomitant]
     Dosage: UNK

REACTIONS (14)
  - Renal cell carcinoma [Fatal]
  - Hypophagia [Unknown]
  - Sensitivity of teeth [Not Recovered/Not Resolved]
  - Disease progression [Fatal]
  - Decreased appetite [Not Recovered/Not Resolved]
  - Toothache [Not Recovered/Not Resolved]
  - Asthenia [Not Recovered/Not Resolved]
  - Pathological fracture [Not Recovered/Not Resolved]
  - Tooth disorder [Unknown]
  - Pain [Not Recovered/Not Resolved]
  - Mastication disorder [Not Recovered/Not Resolved]
  - Dyspnoea [Unknown]
  - Pain in extremity [Recovering/Resolving]
  - Back pain [Not Recovered/Not Resolved]

NARRATIVE: CASE EVENT DATE: 2014
